FAERS Safety Report 6825468-2 (Version None)
Quarter: 2010Q3

REPORT INFORMATION
  Report Type: 
  Country: None (occurrence: None)
  Receive Date: 20100708
  Receipt Date: 20061215
  Transmission Date: 20110219
  Serious: No
  Sender: FDA-Public Use
  Company Number: US-PFIZER INC-2006156055

PATIENT
  Sex: Male
  Weight: 92.99 kg

DRUGS (10)
  1. CHANTIX [Suspect]
     Indication: SMOKING CESSATION THERAPY
     Dates: start: 20061201
  2. CAFFEINE [Suspect]
     Dosage: 4 CUPS
  3. REMERON [Concomitant]
     Indication: ANTIDEPRESSANT THERAPY
  4. CYMBALTA [Concomitant]
     Indication: ANTIDEPRESSANT THERAPY
  5. VALIUM [Concomitant]
     Indication: ANTIDEPRESSANT THERAPY
  6. TRICOR [Concomitant]
     Indication: BLOOD CHOLESTEROL INCREASED
  7. CADUET [Concomitant]
     Indication: HYPERTENSION
  8. CADUET [Concomitant]
     Indication: BLOOD CHOLESTEROL INCREASED
  9. FLONASE [Concomitant]
  10. LORTAB [Concomitant]
     Indication: PAIN

REACTIONS (5)
  - ABNORMAL DREAMS [None]
  - DRUG INEFFECTIVE [None]
  - FATIGUE [None]
  - HEADACHE [None]
  - MIDDLE INSOMNIA [None]
